FAERS Safety Report 11908617 (Version 2)
Quarter: 2016Q1

REPORT INFORMATION
  Report Type: Spontaneous
  Country: FR (occurrence: FR)
  Receive Date: 20160111
  Receipt Date: 20160115
  Transmission Date: 20160526
  Serious: Yes (Life-Threatening)
  Sender: FDA-Public Use
  Company Number: PHHY2015FR171988

PATIENT
  Sex: Female

DRUGS (4)
  1. APREPITANT. [Interacting]
     Active Substance: APREPITANT
     Indication: CHEMOTHERAPY
     Route: 065
  2. OXYCODONE HYDROCHLORIDE. [Interacting]
     Active Substance: OXYCODONE HYDROCHLORIDE
     Indication: PAIN
     Route: 042
  3. PAROXETINE [Suspect]
     Active Substance: PAROXETINE\PAROXETINE HYDROCHLORIDE
     Indication: PRODUCT USED FOR UNKNOWN INDICATION
     Route: 065
  4. DOXORUBICIN [Concomitant]
     Active Substance: DOXORUBICIN
     Indication: CHEMOTHERAPY
     Route: 065

REACTIONS (4)
  - Cardiac arrest [Recovered/Resolved]
  - Drug interaction [Unknown]
  - Respiratory arrest [Recovered/Resolved]
  - Toxicity to various agents [Unknown]
